FAERS Safety Report 6812800-9 (Version None)
Quarter: 2010Q3

REPORT INFORMATION
  Report Type: 
  Country: None (occurrence: None)
  Receive Date: 20100701
  Receipt Date: 20100621
  Transmission Date: 20110219
  Serious: Yes (Other)
  Sender: FDA-Public Use
  Company Number: B0662847A

PATIENT
  Sex: Male

DRUGS (4)
  1. AVANDAMET [Suspect]
     Dates: start: 20100609, end: 20100610
  2. ASPIRIN [Concomitant]
  3. GLIPIZIDE [Concomitant]
  4. ATORVASTATIN [Concomitant]

REACTIONS (1)
  - HALLUCINATION [None]
